FAERS Safety Report 8917796 (Version 1)
Quarter: 2012Q4

REPORT INFORMATION
  Report Type: 
  Country: AU (occurrence: AU)
  Receive Date: 20121120
  Receipt Date: 20121120
  Transmission Date: 20130627
  Serious: Yes (Other)
  Sender: FDA-Public Use
  Company Number: AU-GILEAD-2012-0064747

PATIENT
  Age: 52 Year
  Sex: Male

DRUGS (2)
  1. ADEFOVIR DIPIVOXIL [Suspect]
     Indication: CHRONIC HEPATITIS B
     Dosage: 20 mg, QD
     Route: 048
  2. LAMIVUDINE [Concomitant]
     Indication: CHRONIC HEPATITIS B
     Dosage: 100 mg, QD
     Dates: start: 2003

REACTIONS (4)
  - Osteonecrosis [Unknown]
  - Femur fracture [Recovered/Resolved]
  - Fanconi syndrome [Recovered/Resolved]
  - Overdose [None]
